FAERS Safety Report 10271694 (Version 2)
Quarter: 2016Q2

REPORT INFORMATION
  Report Type: Report from Study
  Country: US (occurrence: US)
  Receive Date: 20140701
  Receipt Date: 20160511
  Transmission Date: 20160815
  Serious: Yes (Hospitalization, Other)
  Sender: FDA-Public Use
  Company Number: US-SA-2013SA134330

PATIENT
  Age: 58 Year
  Sex: Female

DRUGS (2)
  1. CEREZYME [Suspect]
     Active Substance: IMIGLUCERASE
     Indication: GAUCHER^S DISEASE
     Dosage: DOSE:3600 UNIT(S)
     Route: 042
  2. CERDELGA [Suspect]
     Active Substance: ELIGLUSTAT
     Indication: GAUCHER^S DISEASE TYPE I
     Route: 048
     Dates: start: 20150406

REACTIONS (10)
  - Haemoglobin decreased [Unknown]
  - Fall [Unknown]
  - Pneumonia [Unknown]
  - Wrist fracture [Unknown]
  - Nasopharyngitis [Unknown]
  - Fatigue [Unknown]
  - Meniscus injury [Unknown]
  - Malaise [Unknown]
  - White blood cell count increased [Unknown]
  - Pneumothorax [Unknown]
